FAERS Safety Report 10193003 (Version 1)
Quarter: 2014Q2

REPORT INFORMATION
  Report Type: Spontaneous
  Country: CA (occurrence: CA)
  Receive Date: 20140524
  Receipt Date: 20140524
  Transmission Date: 20141212
  Serious: Yes (Other)
  Sender: FDA-Public Use
  Company Number: PHHY2014CA062489

PATIENT
  Age: 19 Year
  Sex: Female

DRUGS (11)
  1. DICLOFENAC [Suspect]
  2. OXYCODONE HYDROCHLORIDE [Suspect]
     Dosage: 80 MG EVERY 8 HOURS
  3. OXYCODONE HYDROCHLORIDE [Suspect]
     Dosage: 40 MG EVERY 4 HOURS
  4. OXYCODONE HYDROCHLORIDE [Suspect]
     Dosage: 10 MG EVERY 8 HOURS
  5. PREGABALIN [Concomitant]
     Dosage: 50 MG, BID
  6. PREGABALIN [Concomitant]
     Dosage: 150 MG PER DAY
  7. AMITRIPTYLINE [Concomitant]
     Dosage: 50 MG, QHS
  8. FENTANYL [Concomitant]
     Dosage: 100 UG/HR
     Route: 062
  9. FENTANYL [Concomitant]
     Dosage: 25 UG/HR
  10. FENTANYL [Concomitant]
     Dosage: 12 UG/HR
  11. CELECOXIB [Concomitant]

REACTIONS (2)
  - Thrombocytopenic purpura [Recovering/Resolving]
  - Drug withdrawal syndrome [Unknown]
